FAERS Safety Report 8268083-9 (Version None)
Quarter: 2012Q2

REPORT INFORMATION
  Report Type: 
  Country: None (occurrence: None)
  Receive Date: 20120404
  Receipt Date: 20120321
  Transmission Date: 20120825
  Serious: Yes (Hospitalization)
  Sender: FDA-Public Use
  Company Number: ACO_29891_2012

PATIENT
  Age: 74 Year
  Sex: Female

DRUGS (5)
  1. AMITRIPTYLIN (AMITRIPTYLINE HYDROCHLORIDE) [Concomitant]
  2. NITRAZEPAM [Concomitant]
  3. FRISIUM (CLOBAZAM) [Concomitant]
  4. FAMPYRA (DALFAMPRIDINE) TABLET [Suspect]
     Indication: MULTIPLE SCLEROSIS
     Dates: start: 20120130, end: 20120202
  5. BACLOFEN [Concomitant]

REACTIONS (4)
  - EPILEPSY [None]
  - BLOOD GLUCOSE INCREASED [None]
  - ELECTROCARDIOGRAM ST SEGMENT DEPRESSION [None]
  - HEART RATE INCREASED [None]
